FAERS Safety Report 14850131 (Version 2)
Quarter: 2018Q2

REPORT INFORMATION
  Report Type: Report from Study
  Country: None (occurrence: US)
  Receive Date: 20180505
  Receipt Date: 20180523
  Transmission Date: 20180711
  Serious: Yes (Hospitalization, Other)
  Sender: FDA-Public Use
  Company Number: US-ABBVIE-18K-163-2345833-00

PATIENT
  Age: 60 Year
  Sex: Female
  Weight: 104.42 kg

DRUGS (13)
  1. LODINE [Concomitant]
     Active Substance: ETODOLAC
     Indication: ARTHRALGIA
  2. HUMIRA [Suspect]
     Active Substance: ADALIMUMAB
     Route: 058
     Dates: end: 201709
  3. REGLAN [Concomitant]
     Active Substance: METOCLOPRAMIDE HYDROCHLORIDE
     Indication: IMPAIRED GASTRIC EMPTYING
  4. ROBAXIN [Concomitant]
     Active Substance: METHOCARBAMOL
     Indication: BACK PAIN
  5. GABAPENTIN. [Concomitant]
     Active Substance: GABAPENTIN
     Indication: AUTONOMIC NEUROPATHY
  6. LODINE [Concomitant]
     Active Substance: ETODOLAC
     Indication: BACK PAIN
  7. TURMERIC [Concomitant]
     Active Substance: HERBALS\TURMERIC
     Indication: ARTHRALGIA
  8. CYMBALTA [Concomitant]
     Active Substance: DULOXETINE HYDROCHLORIDE
     Indication: BACK PAIN
  9. HUMIRA [Suspect]
     Active Substance: ADALIMUMAB
     Indication: RHEUMATOID ARTHRITIS
     Route: 058
     Dates: start: 2014
  10. METOPROLOL. [Concomitant]
     Active Substance: METOPROLOL
     Indication: AUTONOMIC NEUROPATHY
  11. PANTOPRAZOLE [Concomitant]
     Active Substance: PANTOPRAZOLE
     Indication: IMPAIRED GASTRIC EMPTYING
  12. TURMERIC [Concomitant]
     Active Substance: HERBALS\TURMERIC
     Indication: BACK PAIN
  13. FLAGYL [Suspect]
     Active Substance: METRONIDAZOLE\METRONIDAZOLE HYDROCHLORIDE
     Indication: GASTROENTERITIS VIRAL
     Route: 065
     Dates: start: 201801, end: 201801

REACTIONS (8)
  - Vomiting [Recovered/Resolved]
  - Body temperature increased [Recovered/Resolved]
  - Dehydration [Recovered/Resolved]
  - Intestinal obstruction [Recovered/Resolved]
  - Ileus [Unknown]
  - Back pain [Unknown]
  - Gastroenteritis viral [Recovered/Resolved]
  - Intestinal obstruction [Recovered/Resolved]

NARRATIVE: CASE EVENT DATE: 201712
